FAERS Safety Report 10410438 (Version 1)
Quarter: 2014Q3

REPORT INFORMATION
  Report Type: Spontaneous
  Country: GB (occurrence: GB)
  Receive Date: 20140826
  Receipt Date: 20140826
  Transmission Date: 20150326
  Serious: Yes (Hospitalization)
  Sender: FDA-Public Use
  Company Number: GB-TEVA-502625ISR

PATIENT
  Age: 30 Year
  Sex: Female
  Weight: 59.6 kg

DRUGS (13)
  1. TRIMETHOPRIM. [Concomitant]
     Active Substance: TRIMETHOPRIM
     Indication: URINARY TRACT INFECTION
     Dosage: 400 MILLIGRAM DAILY;
     Dates: start: 20140408, end: 20140409
  2. CHLORPHENAMINE [Concomitant]
     Active Substance: CHLORPHENIRAMINE MALEATE
  3. LOPERAMIDE [Concomitant]
     Active Substance: LOPERAMIDE
     Indication: IRRITABLE BOWEL SYNDROME
     Dosage: 2MG WHEN REQUIRED
  4. MACROGOL [Concomitant]
     Active Substance: POLYETHYLENE GLYCOLS
     Indication: IRRITABLE BOWEL SYNDROME
     Dosage: SACHETS 1 SACHET TWICE DAILY WHEN REQUIRED
     Route: 048
  5. MEBEVERINE [Concomitant]
     Active Substance: MEBEVERINE
     Indication: IRRITABLE BOWEL SYNDROME
     Dosage: 135MG THREE TIMES DAILY WHEN REQUIRED
     Dates: start: 20140429
  6. NAPROXEN. [Concomitant]
     Active Substance: NAPROXEN
     Dosage: 250MG - 500MG TWICE DAILY WHEN REQUIRED
     Dates: start: 20140506
  7. PRUCALOPRIDE [Suspect]
     Active Substance: PRUCALOPRIDE
     Indication: IRRITABLE BOWEL SYNDROME
     Dosage: 2 MILLIGRAM DAILY;
     Route: 048
     Dates: start: 201307, end: 20140513
  8. ERYTHROMYCIN. [Concomitant]
     Active Substance: ERYTHROMYCIN
     Dosage: 2 GRAM DAILY;
     Dates: start: 20140121, end: 20140128
  9. METRONIDAZOLE. [Concomitant]
     Active Substance: METRONIDAZOLE
     Dosage: 1200 MILLIGRAM DAILY;
     Dates: start: 20140205, end: 20140211
  10. IBUPROFEN. [Concomitant]
     Active Substance: IBUPROFEN
     Dosage: 400MG THREE TIMES DAILY WHEN REQUIRED
  11. CITALOPRAM [Suspect]
     Active Substance: CITALOPRAM HYDROBROMIDE
     Indication: IRRITABLE BOWEL SYNDROME
     Dosage: 10 MILLIGRAM DAILY;
     Route: 048
     Dates: start: 20140306, end: 20140513
  12. SALBUTAMOL [Concomitant]
     Active Substance: ALBUTEROL
     Indication: ASTHMA
  13. TRAMCET [Concomitant]
     Active Substance: ACETAMINOPHEN\TRAMADOL
     Dosage: 37.5MG/500MG TABLETS - 2 TABLETS WHEN REQUIRED
     Dates: start: 20140429

REACTIONS (3)
  - Electrocardiogram QT prolonged [Recovering/Resolving]
  - Erythema nodosum [Unknown]
  - Malaise [Unknown]
